FAERS Safety Report 5619773-5 (Version None)
Quarter: 2008Q1

REPORT INFORMATION
  Report Type: 
  Country: None (occurrence: None)
  Receive Date: 20080208
  Receipt Date: 20080130
  Transmission Date: 20080703
  Serious: Yes (Hospitalization)
  Sender: FDA-Public Use
  Company Number: GB-JNJFOC-20080200172

PATIENT
  Sex: Male
  Weight: 101 kg

DRUGS (1)
  1. ITRACONAZOLE [Suspect]
     Indication: PROPHYLAXIS
     Route: 048

REACTIONS (1)
  - NEUTROPENIC SEPSIS [None]
